FAERS Safety Report 5590704-X (Version None)
Quarter: 2008Q1

REPORT INFORMATION
  Report Type: 
  Country: None (occurrence: None)
  Receive Date: 20080114
  Receipt Date: 20080102
  Transmission Date: 20080703
  Serious: Yes (Other)
  Sender: FDA-Public Use
  Company Number: US-PFIZER INC-2007092275

PATIENT
  Sex: Male
  Weight: 110.7 kg

DRUGS (6)
  1. LYRICA [Suspect]
     Indication: NEURALGIA
     Route: 048
  2. PAXIL [Concomitant]
  3. MS CONTIN [Concomitant]
  4. HYDROCODONE BITARTRATE + ACETAMINOPHEN [Concomitant]
  5. NORTRIPTYLINE [Concomitant]
  6. FLEXERIL [Concomitant]

REACTIONS (1)
  - HYPERSOMNIA [None]
